FAERS Safety Report 15497867 (Version 1)
Quarter: 2018Q4

REPORT INFORMATION
  Report Type: Spontaneous
  Country: US (occurrence: US)
  Receive Date: 20181015
  Receipt Date: 20181015
  Transmission Date: 20190205
  Serious: No
  Sender: FDA-Public Use
  Company Number: US-PFIZER INC-2018409138

PATIENT
  Age: 65 Year
  Sex: Female
  Weight: 88.44 kg

DRUGS (1)
  1. SERTRALINE HCL [Suspect]
     Active Substance: SERTRALINE HYDROCHLORIDE
     Indication: PANIC DISORDER
     Dosage: 200 MG, 1X/DAY
     Route: 048

REACTIONS (6)
  - Depressed mood [Recovered/Resolved]
  - Asthenia [Recovered/Resolved]
  - Emotional disorder [Unknown]
  - Nervousness [Recovered/Resolved]
  - Fatigue [Recovered/Resolved]
  - Tremor [Recovered/Resolved]
